FAERS Safety Report 25047384 (Version 1)
Quarter: 2025Q1

REPORT INFORMATION
  Report Type: Spontaneous
  Country: FR (occurrence: FR)
  Receive Date: 20250306
  Receipt Date: 20250306
  Transmission Date: 20250408
  Serious: Yes (Other)
  Sender: MYLAN
  Company Number: None

PATIENT
  Age: 39 Year
  Sex: Male

DRUGS (2)
  1. XANAX [4]
     Active Substance: ALPRAZOLAM
     Indication: Product used for unknown indication
  2. HALDOL [Suspect]
     Active Substance: HALOPERIDOL
     Indication: Product used for unknown indication
     Dates: start: 20250205, end: 20250205

REACTIONS (3)
  - Extrapyramidal disorder [Recovered/Resolved]
  - Hyperleukocytosis [Recovered/Resolved]
  - Wrong product administered [Recovered/Resolved]

NARRATIVE: CASE EVENT DATE: 20250205
